FAERS Safety Report 4784354-2 (Version None)
Quarter: 2005Q3

REPORT INFORMATION
  Report Type: 
  Country: None (occurrence: None)
  Receive Date: 20050930
  Receipt Date: 20050923
  Transmission Date: 20060218
  Serious: Yes (Other)
  Sender: FDA-Public Use
  Company Number: 200516838US

PATIENT
  Sex: Male

DRUGS (1)
  1. LOVENOX [Suspect]
     Dosage: DOSE: UNK

REACTIONS (4)
  - BEDRIDDEN [None]
  - COUGH [None]
  - GASTROINTESTINAL TUBE INSERTION [None]
  - PNEUMONIA ASPIRATION [None]
